FAERS Safety Report 8800851 (Version 1)
Quarter: 2012Q4

REPORT INFORMATION
  Report Type: 
  Country: UA (occurrence: UA)
  Receive Date: 20120921
  Receipt Date: 20120921
  Transmission Date: 20130627
  Serious: Yes (Other)
  Sender: FDA-Public Use
  Company Number: UA-PFIZER INC-2012230427

PATIENT
  Age: 46 Year
  Sex: Male

DRUGS (1)
  1. VIAGRA [Suspect]
     Indication: ERECTILE DYSFUNCTION
     Dosage: 200 mg, single
     Route: 048
     Dates: start: 20120914, end: 20120914

REACTIONS (2)
  - Urinary retention [Recovered/Resolved]
  - Penile pain [Recovered/Resolved]
